FAERS Safety Report 7376925-4 (Version None)
Quarter: 2011Q1

REPORT INFORMATION
  Report Type: 
  Country: None (occurrence: None)
  Receive Date: 20110328
  Receipt Date: 20110321
  Transmission Date: 20110831
  Serious: Yes (Other)
  Sender: FDA-Public Use
  Company Number: GB-AMGEN-GBRSP2011015866

PATIENT
  Age: 73 Year
  Sex: Male

DRUGS (7)
  1. CO-DYDRAMOL [Concomitant]
     Dosage: UNK
  2. LANSOPRAZOLE [Concomitant]
     Dosage: UNK
  3. RISEDRONIC ACID [Concomitant]
     Dosage: UNK
  4. ETANERCEPT [Suspect]
     Indication: RHEUMATOID ARTHRITIS
     Dosage: 50 MG, WEEKLY
     Route: 058
     Dates: start: 20100101
  5. BENDROFLUAZIDE [Concomitant]
     Dosage: UNK
  6. CALCICHEW [Concomitant]
     Dosage: UNK
  7. PREDNISOLONE [Concomitant]
     Dosage: UNK

REACTIONS (1)
  - PROSTATE CANCER [None]
